FAERS Safety Report 24222770 (Version 1)
Quarter: 2024Q3

REPORT INFORMATION
  Report Type: Spontaneous
  Country: US (occurrence: None)
  Receive Date: 20240816
  Receipt Date: 20240816
  Transmission Date: 20241016
  Serious: No
  Sender: Public
  Company Number: None

PATIENT
  Age: 82 Year
  Sex: Female
  Weight: 70.8 kg

DRUGS (22)
  1. CAMZYOS [Suspect]
     Active Substance: MAVACAMTEN
     Indication: Hypertrophic cardiomyopathy
     Dosage: 5 MG DAILY ORAL
     Route: 048
  2. ACETAMINOPHEN [Concomitant]
     Active Substance: ACETAMINOPHEN
  3. ACETYLCYSTEINE [Concomitant]
     Active Substance: ACETYLCYSTEINE
  4. ASCORBIC ACID [Concomitant]
     Active Substance: ASCORBIC ACID
  5. ATENOLOL [Concomitant]
     Active Substance: ATENOLOL
  6. BETA CAROTENE [Concomitant]
     Active Substance: BETA CAROTENE
  7. CETIRIZINE [Concomitant]
     Active Substance: CETIRIZINE HYDROCHLORIDE
  8. CHOLECALCIFEROL [Concomitant]
     Active Substance: CHOLECALCIFEROL
  9. coenzyme q 10 [Concomitant]
  10. DICYCLOMINE [Concomitant]
     Active Substance: DICYCLOMINE HYDROCHLORIDE
  11. DILTIAZEM [Concomitant]
     Active Substance: DILTIAZEM
  12. ELIQUIS [Concomitant]
     Active Substance: APIXABAN
  13. FAMOTIDINE [Concomitant]
     Active Substance: FAMOTIDINE
  14. GLYCINE [Concomitant]
     Active Substance: GLYCINE
  15. HYDROXYZINE [Concomitant]
     Active Substance: HYDROXYZINE HYDROCHLORIDE
  16. LYSINE [Concomitant]
     Active Substance: LYSINE
  17. MAGNESIUM [Concomitant]
     Active Substance: MAGNESIUM
  18. DIETARY SUPPLEMENT\HERBALS\MILK THISTLE [Concomitant]
     Active Substance: MILK THISTLE
  19. PREDNISONE [Concomitant]
     Active Substance: PREDNISONE
  20. VITAMIN A [Concomitant]
     Active Substance: VITAMIN A
  21. MENAQUINONE 6 [Concomitant]
     Active Substance: MENAQUINONE 6
  22. ZOLPIDEM [Concomitant]
     Active Substance: ZOLPIDEM TARTRATE

REACTIONS (5)
  - Dysgeusia [None]
  - Burning sensation [None]
  - Eye irritation [None]
  - Oral discomfort [None]
  - Oral discomfort [None]

NARRATIVE: CASE EVENT DATE: 20230724
